FAERS Safety Report 8483086-7 (Version None)
Quarter: 2012Q3

REPORT INFORMATION
  Report Type: 
  Country: None (occurrence: None)
  Receive Date: 20120702
  Receipt Date: 20120625
  Transmission Date: 20120928
  Serious: Yes (Life-Threatening, Hospitalization)
  Sender: FDA-Public Use
  Company Number: US-ROCHE-CID000000002058531

PATIENT
  Sex: Male
  Weight: 62.2 kg

DRUGS (11)
  1. KCL ELIXIR [Concomitant]
  2. MAALOX, BENADRYL + LIDOCAINE MOUTH RINSE [Concomitant]
  3. PROPRANOLOL [Concomitant]
  4. AVASTIN [Suspect]
     Indication: METASTATIC RENAL CELL CARCINOMA
     Route: 042
     Dates: start: 20120320, end: 20120612
  5. TEMSIROLIMUS [Suspect]
     Indication: METASTATIC RENAL CELL CARCINOMA
     Route: 042
     Dates: start: 20120320, end: 20120619
  6. ETODOLAC [Concomitant]
  7. OXYCODONE HCL [Concomitant]
  8. SENNA-MINT WAF [Concomitant]
  9. GUAIFENESIN [Concomitant]
  10. PHOSPHA 250 NEUTRAL [Concomitant]
  11. OXYCONTIN [Concomitant]

REACTIONS (4)
  - VOCAL CORD PARALYSIS [None]
  - OESOPHAGEAL PERFORATION [None]
  - DYSPNOEA [None]
  - TRACHEAL INJURY [None]
